FAERS Safety Report 9855682 (Version 1)
Quarter: 2014Q1

REPORT INFORMATION
  Report Type: Spontaneous
  Country: US (occurrence: None)
  Receive Date: 20140129
  Receipt Date: 20140129
  Transmission Date: 20141002
  Serious: Yes (Other)
  Sender: FDA-Public Use
  Company Number: None

PATIENT
  Age: 67 Year
  Sex: Female
  Weight: 46.27 kg

DRUGS (1)
  1. ATELVIA 35MG WARNERCHILCOTT [Suspect]
     Dosage: 1, WEEKLY, TAKEN BY MOUTH
     Route: 048
     Dates: start: 20140127

REACTIONS (4)
  - Abdominal pain upper [None]
  - Chills [None]
  - Diarrhoea [None]
  - Impaired work ability [None]
